FAERS Safety Report 7413658-X (Version None)
Quarter: 2011Q2

REPORT INFORMATION
  Report Type: 
  Country: None (occurrence: None)
  Receive Date: 20110413
  Receipt Date: 20110405
  Transmission Date: 20111010
  Serious: Yes (Death)
  Sender: FDA-Public Use
  Company Number: US-BAXTER-2011BH010516

PATIENT
  Sex: Female

DRUGS (4)
  1. DOXORUBICIN GENERIC [Suspect]
     Indication: BREAST CANCER
     Route: 042
  2. PACLITAXEL [Suspect]
     Indication: BREAST CANCER
     Route: 042
  3. CYCLOPHOSPHAMIDE [Suspect]
     Indication: BREAST CANCER
     Route: 048
  4. GRANULOCYTE COLONY STIMULATING FACTOR [Concomitant]
     Indication: BREAST CANCER
     Route: 065

REACTIONS (1)
  - HEPATIC FAILURE [None]
